FAERS Safety Report 5636131-8 (Version None)
Quarter: 2008Q1

REPORT INFORMATION
  Report Type: 
  Country: None (occurrence: None)
  Receive Date: 20080220
  Receipt Date: 20080214
  Transmission Date: 20080703
  Serious: Yes (Hospitalization)
  Sender: FDA-Public Use
  Company Number: E2020-02294-SPO-JP

PATIENT
  Age: 78 Year
  Sex: Female
  Weight: 43 kg

DRUGS (4)
  1. ARICEPT [Suspect]
     Indication: DEMENTIA ALZHEIMER'S TYPE
     Dosage: 3 MG, 1 IN 1 D, ORAL
     Route: 048
     Dates: start: 20080124, end: 20080131
  2. SERMION (NICERGOLINE) [Concomitant]
  3. PENFILL 30R (INSULIN HUMAN) [Concomitant]
  4. PENFILL 30R (INSULIN HUMAN) [Concomitant]

REACTIONS (1)
  - DYSKINESIA [None]
